FAERS Safety Report 4266252-6 (Version None)
Quarter: 2004Q1

REPORT INFORMATION
  Report Type: 
  Country: None (occurrence: None)
  Receive Date: 20040106
  Receipt Date: 20021204
  Transmission Date: 20041129
  Serious: Yes (Hospitalization)
  Sender: FDA-Public Use
  Company Number: 2002068598

PATIENT
  Age: 30 Year
  Sex: Female
  Weight: 52 kg

DRUGS (23)
  1. GABAPENTIN [Suspect]
     Indication: EPILEPSY
     Dosage: 1200 MG (THREE TIMES DAILY), ORAL
     Route: 048
     Dates: start: 20020802
  2. CARBAMAZEPINE [Concomitant]
  3. CLOBAZAM (CLOBAZAM) [Concomitant]
  4. THEOPHYLLINE [Concomitant]
  5. PRANLUKAST (PRANLUKAST) [Concomitant]
  6. SALBUTAMOL (SALBUTAMOL) [Concomitant]
  7. BUDESONIDE (BUDESONIDE) [Concomitant]
  8. TULOBUTEROL HYDROCHLORIDE (TULOBUTEROL HYDROCHLORIDE) [Concomitant]
  9. METHYLPREDNISOLONE [Concomitant]
  10. AMINOPHYLLIN [Concomitant]
  11. ACTIT (MALTOSE, SODIUM ACETATE, POTASSIUM CHLORIDE, SODIUM CHLORIDE, P [Concomitant]
  12. SOLITA T (ELECTROLYTES NOS) [Concomitant]
  13. CEFDINIR (CEFDINIR) [Concomitant]
  14. ACEMETACIN (ACEMETACIN) [Concomitant]
  15. PENTOXYVERINE (PENTOXYVERINE) [Concomitant]
  16. SODIUM CHLORIDE 0.9% [Concomitant]
  17. BROMHEXINE HYDROCHLORIDE (BROMHEXINE HYDROCHLORIDE) [Concomitant]
  18. PROCATEROL HYDROCHLORIDE (PROCATEROL HYDROCHLORIDE) [Concomitant]
  19. HYDROCORTISONE SODIUM SUCCINATE [Concomitant]
  20. SOLDEM 3A (SODIUM LACTATE, POTASSIUM CHLORIDE, SODIUM CHLORIDE, CARBOH [Concomitant]
  21. DIAZEPAM [Concomitant]
  22. MAGNESIUM OXIDE (MAGNESIUM OXIDE) [Concomitant]
  23. CEFCAPENE PIVOXIL HYDROCHLORIDE (CEFCAPENE PIVOXIL HYDROCHLORIDE) [Concomitant]

REACTIONS (9)
  - ARTHRALGIA [None]
  - ASTHMA [None]
  - BRONCHITIS ACUTE [None]
  - DIZZINESS [None]
  - DRUG INTERACTION [None]
  - INFLAMMATION [None]
  - NASOPHARYNGITIS [None]
  - PAIN [None]
  - PYREXIA [None]
